FAERS Safety Report 13039665 (Version 1)
Quarter: 2016Q4

REPORT INFORMATION
  Report Type: Spontaneous
  Country: US (occurrence: US)
  Receive Date: 20161218
  Receipt Date: 20161218
  Transmission Date: 20170207
  Serious: Yes (Other)
  Sender: FDA-Public Use
  Company Number: None

PATIENT
  Age: 70 Year
  Sex: Female
  Weight: 72.45 kg

DRUGS (6)
  1. MOMETASONE [Suspect]
     Active Substance: MOMETASONE
  2. OMEPRAZOLE. [Concomitant]
     Active Substance: OMEPRAZOLE
  3. IRBESARTAN. [Suspect]
     Active Substance: IRBESARTAN
     Indication: HYPERTENSION
     Dosage: ?          QUANTITY:90 TABLET(S);?
     Route: 048
  4. PROAIR HFA [Concomitant]
     Active Substance: ALBUTEROL SULFATE
  5. VICKS VAPORUB [Concomitant]
     Active Substance: CAMPHOR (SYNTHETIC)\EUCALYPTUS OIL\MENTHOL
  6. BUPROPION. [Concomitant]
     Active Substance: BUPROPION

REACTIONS (24)
  - Pain [None]
  - Abdominal pain [None]
  - Dysphagia [None]
  - Gastrointestinal motility disorder [None]
  - Depression [None]
  - Dyspepsia [None]
  - Sleep disorder [None]
  - Syncope [None]
  - Weight increased [None]
  - Wheezing [None]
  - Bladder pain [None]
  - Chest pain [None]
  - Dysphonia [None]
  - Oesophagitis [None]
  - Drug ineffective [None]
  - Back pain [None]
  - Cough [None]
  - Arthralgia [None]
  - Dry mouth [None]
  - Therapy cessation [None]
  - Chills [None]
  - Thirst [None]
  - Gingival bleeding [None]
  - Hypertension [None]
